FAERS Safety Report 20900534 (Version 1)
Quarter: 2022Q2

REPORT INFORMATION
  Report Type: Spontaneous
  Country: IT (occurrence: IT)
  Receive Date: 20220601
  Receipt Date: 20220601
  Transmission Date: 20220721
  Serious: Yes (Other)
  Sender: FDA-Public Use
  Company Number: IT-MYLANLABS-2022M1039805

PATIENT
  Age: 70 Year
  Sex: Female

DRUGS (1)
  1. IBUPROFEN [Suspect]
     Active Substance: IBUPROFEN
     Indication: Neck pain
     Dosage: 600 MILLIGRAM(ONE SACHET EVERY 12 HOURS, THEN ONE SACHET EVERY 3 HOURS)
     Route: 048
     Dates: start: 20220421, end: 20220426

REACTIONS (3)
  - Haematochezia [Recovered/Resolved]
  - Extra dose administered [Recovered/Resolved]
  - Intentional product misuse [Recovered/Resolved]
